FAERS Safety Report 4938439-8 (Version None)
Quarter: 2006Q1

REPORT INFORMATION
  Report Type: 
  Country: None (occurrence: None)
  Receive Date: 20060306
  Receipt Date: 20060227
  Transmission Date: 20060701
  Serious: Yes (Hospitalization)
  Sender: FDA-Public Use
  Company Number: 2006BI000511

PATIENT
  Age: 27 Year
  Sex: Female
  Weight: 64.4108 kg

DRUGS (4)
  1. AVONEX [Suspect]
     Indication: MULTIPLE SCLEROSIS
     Dosage: 30 UG; QW; IM
     Route: 030
     Dates: start: 19960101, end: 19990101
  2. AVONEX [Suspect]
     Indication: MULTIPLE SCLEROSIS
     Dosage: 30 UG; QW; IM
     Route: 030
     Dates: start: 20000201, end: 20010101
  3. AVONEX [Suspect]
     Indication: MULTIPLE SCLEROSIS
     Dosage: 30 UG; QW; IM
     Route: 030
     Dates: start: 20020901
  4. FLEXERIL [Concomitant]

REACTIONS (5)
  - BIPOLAR DISORDER [None]
  - DRUG EXPOSURE BEFORE PREGNANCY [None]
  - MEMORY IMPAIRMENT [None]
  - OVERDOSE [None]
  - PREGNANCY [None]
